FAERS Safety Report 14843265 (Version 1)
Quarter: 2020Q3

REPORT INFORMATION
  Report Type: Spontaneous
  Country: BY (occurrence: BY)
  Receive Date: 20180503
  Receipt Date: 20180503
  Transmission Date: 20201105
  Serious: Yes (Other)
  Sender: FDA-Public Use
  Company Number: BY-PFIZER INC-2018179504

PATIENT
  Age: 33 Year
  Sex: Male
  Weight: 66.98 kg

DRUGS (6)
  1. DELAMANID [Suspect]
     Active Substance: DELAMANID
     Dosage: UNK
     Dates: start: 20170810
  2. CLOFAZIMINE [Concomitant]
     Active Substance: CLOFAZIMINE
     Dosage: UNK
     Dates: start: 20170810
  3. AMIKACIN. [Suspect]
     Active Substance: AMIKACIN
     Dosage: 1000 (UNKNOWN DOSE UNIT), DAILY
     Route: 030
     Dates: start: 20170810, end: 20180109
  4. IMIPENEM AND CILASTATIN [Suspect]
     Active Substance: CILASTATIN SODIUM\IMIPENEM
     Dosage: 2000, (UNKNOWN DOSE UNIT), DAILY
     Route: 042
     Dates: start: 20170810, end: 20180109
  5. LINEZOLID. [Suspect]
     Active Substance: LINEZOLID
     Dosage: 600 (UNKNOWN DOSE UNIT), DAILY
     Route: 048
     Dates: start: 20170810, end: 20180109
  6. AMOXICILLIN AND CLAVULANATE POTASSIUM [Suspect]
     Active Substance: AMOXICILLIN\CLAVULANATE POTASSIUM
     Dosage: 2500, (UNKNOWN DOSE UNIT), DAILY
     Route: 048
     Dates: start: 20170810, end: 20180109

REACTIONS (4)
  - Hyperbilirubinaemia [Recovered/Resolved]
  - Jaundice [Unknown]
  - Alanine aminotransferase increased [Recovered/Resolved]
  - Hepatitis C virus test positive [Unknown]

NARRATIVE: CASE EVENT DATE: 20180109
